FAERS Safety Report 10226494 (Version 1)
Quarter: 2014Q2

REPORT INFORMATION
  Report Type: Spontaneous
  Country: US (occurrence: US)
  Receive Date: 20140609
  Receipt Date: 20140609
  Transmission Date: 20141212
  Serious: No
  Sender: FDA-Public Use
  Company Number: US-AMGEN INC.-USASP2013046864

PATIENT
  Age: 62 Year
  Sex: Female
  Weight: 111.57 kg

DRUGS (8)
  1. PROCRIT [Suspect]
     Indication: ANAEMIA
     Dosage: 40000 UNIT, QMO
     Route: 058
     Dates: start: 201301
  2. LISINOPRIL + HIDROCLOROTIAZIDA [Concomitant]
     Indication: BLOOD PRESSURE
     Dosage: 20 MG, BID
     Route: 048
     Dates: start: 1996
  3. OMEPRAZOLE [Concomitant]
     Dosage: 20 MG, QD
     Route: 048
     Dates: start: 2011
  4. CITALOPRAM HBR [Concomitant]
     Indication: ANXIETY
     Dosage: 20 MG, QD
     Route: 048
     Dates: start: 2011
  5. FOLIC ACID [Concomitant]
     Indication: FOLATE DEFICIENCY
     Dosage: 1 MG, QD
     Route: 048
     Dates: start: 2013
  6. METFORMIN HCL [Concomitant]
     Indication: DIABETES MELLITUS
     Dosage: 1000 MG, TWO TABLETS DAILY
     Route: 048
     Dates: start: 1994
  7. VITAMIN B12                        /00056201/ [Concomitant]
     Indication: VITAMIN B2 DEFICIENCY
     Dosage: 1000 MUG, QD
     Route: 048
     Dates: start: 2012
  8. VITAMIN D3 [Concomitant]
     Indication: VITAMIN D DEFICIENCY
     Dosage: 2000 IU, QD
     Route: 048
     Dates: start: 2012

REACTIONS (1)
  - Haemoglobin abnormal [Unknown]
